FAERS Safety Report 9700053 (Version 2)
Quarter: 2013Q4

REPORT INFORMATION
  Report Type: Report from Study
  Country: TR (occurrence: TR)
  Receive Date: 20131121
  Receipt Date: 20131121
  Transmission Date: 20140711
  Serious: Yes (Other)
  Sender: FDA-Public Use
  Company Number: TR-ROCHE-1300707

PATIENT
  Sex: Male

DRUGS (4)
  1. ALTEPLASE [Suspect]
     Indication: PERIPHERAL ARTERY THROMBOSIS
     Route: 042
  2. ALTEPLASE [Suspect]
     Indication: PERIPHERAL ARTERY THROMBOSIS
  3. UNFRACTIONATED HEPARIN [Suspect]
     Indication: PERIPHERAL ARTERY THROMBOSIS
     Dosage: LOADING DOSE OF 75 UNITS/KG FOR 2 DAYS
     Route: 065
  4. UNFRACTIONATED HEPARIN [Suspect]
     Indication: PERIPHERAL ARTERY THROMBOSIS
     Dosage: 28 UNITS/KG/HOUR (ADJUSTMENT TO MAINTAIN THE APTT PATIENT/CONTROL RATIO IN THE 2 TO 3 RANGE OR THE A
     Route: 065

REACTIONS (3)
  - Apnoea [Unknown]
  - Hypotension [Unknown]
  - Skin haemorrhage [Unknown]
